FAERS Safety Report 7184147-5 (Version None)
Quarter: 2010Q4

REPORT INFORMATION
  Report Type: 
  Country: None (occurrence: None)
  Receive Date: 20101222
  Receipt Date: 20101220
  Transmission Date: 20110411
  Serious: Yes (Other)
  Sender: FDA-Public Use
  Company Number: US-CEPHALON-2010005928

PATIENT
  Sex: Female
  Weight: 54 kg

DRUGS (5)
  1. NUVIGIL [Suspect]
     Indication: HYPERSOMNIA
     Route: 048
     Dates: start: 20100501
  2. NUVIGIL [Suspect]
     Indication: COUGH
     Route: 048
     Dates: start: 20101103
  3. COUMADIN [Concomitant]
     Indication: ATRIAL FIBRILLATION
  4. ANTIHYPERTENSIVE [Concomitant]
     Indication: HYPERTENSION
     Dates: start: 20100701
  5. CHOLESTEROL MEDICATION [Concomitant]
     Indication: BLOOD CHOLESTEROL
     Dates: start: 20100801

REACTIONS (8)
  - AMNESIA [None]
  - CEREBROVASCULAR ACCIDENT [None]
  - CONFUSIONAL STATE [None]
  - DRUG INEFFECTIVE FOR UNAPPROVED INDICATION [None]
  - HEADACHE [None]
  - PSYCHOMOTOR HYPERACTIVITY [None]
  - ROAD TRAFFIC ACCIDENT [None]
  - SPEECH DISORDER [None]
